FAERS Safety Report 16569620 (Version 3)
Quarter: 2019Q4

REPORT INFORMATION
  Report Type: Spontaneous
  Country: JP (occurrence: JP)
  Receive Date: 20190715
  Receipt Date: 20191223
  Transmission Date: 20200122
  Serious: Yes (Death, Hospitalization)
  Sender: FDA-Public Use
  Company Number: JP-ROCHE-2353010

PATIENT
  Age: 45 Year
  Sex: Female
  Weight: 49 kg

DRUGS (15)
  1. PRIMPERAN [Concomitant]
     Active Substance: METOCLOPRAMIDE HYDROCHLORIDE
     Dosage: DOSAGE IS UNCERTAIN.
     Route: 065
  2. FULVESTRANT. [Concomitant]
     Active Substance: FULVESTRANT
     Dosage: DOSAGE IS UNCERTAIN.
     Route: 065
     Dates: start: 201902, end: 201905
  3. DEXART [Concomitant]
     Active Substance: DEXAMETHASONE SODIUM PHOSPHATE
     Dosage: DOSAGE IS UNCERTAIN.
     Route: 065
     Dates: start: 20190613, end: 20190613
  4. POLARAMINE [Concomitant]
     Active Substance: DEXCHLORPHENIRAMINE MALEATE
     Dosage: DOSAGE IS UNCERTAIN.
     Route: 065
  5. DEXART [Concomitant]
     Active Substance: DEXAMETHASONE SODIUM PHOSPHATE
     Dosage: DOSAGE IS UNCERTAIN.
     Route: 065
     Dates: start: 20190628, end: 20190628
  6. PACLITAXEL. [Concomitant]
     Active Substance: PACLITAXEL
     Dosage: DOSAGE IS UNCERTAIN.
     Route: 041
     Dates: start: 20190628, end: 20190628
  7. CELECOX [Concomitant]
     Active Substance: CELECOXIB
     Indication: PAIN
     Route: 048
     Dates: start: 20190620
  8. AVASTIN [Suspect]
     Active Substance: BEVACIZUMAB
     Dosage: DOSAGE IS UNCERTAIN.
     Route: 041
     Dates: start: 20190628
  9. ZANTAC [Concomitant]
     Active Substance: RANITIDINE HYDROCHLORIDE
     Dosage: DOSAGE IS UNCERTAIN.
     Route: 065
  10. FUROSEMIDE. [Concomitant]
     Active Substance: FUROSEMIDE
     Dosage: DOSAGE IS UNCERTAIN.
     Route: 065
  11. AVASTIN [Suspect]
     Active Substance: BEVACIZUMAB
     Indication: BREAST CANCER
     Route: 041
     Dates: start: 20190613, end: 20190613
  12. CELECOXIB. [Concomitant]
     Active Substance: CELECOXIB
     Indication: PAIN
     Route: 048
     Dates: start: 20190620, end: 20190701
  13. PACLITAXEL. [Concomitant]
     Active Substance: PACLITAXEL
     Indication: BREAST CANCER
     Dosage: DOSAGE IS UNCERTAIN.
     Route: 041
     Dates: start: 20190613, end: 20190613
  14. ALDACTONE A [Concomitant]
     Active Substance: SPIRONOLACTONE
     Dosage: DOSAGE IS UNCERTAIN.
     Route: 065
     Dates: start: 20190521
  15. ABEMACICLIB [Concomitant]
     Active Substance: ABEMACICLIB
     Dosage: DOSAGE IS UNCERTAIN.
     Route: 065
     Dates: start: 201902, end: 201905

REACTIONS (3)
  - Intestinal varices haemorrhage [Fatal]
  - Upper gastrointestinal haemorrhage [Fatal]
  - Cytopenia [Recovering/Resolving]

NARRATIVE: CASE EVENT DATE: 20190627
